FAERS Safety Report 9333117 (Version 1)
Quarter: 2013Q2

REPORT INFORMATION
  Report Type: Spontaneous
  Country: GB (occurrence: GB)
  Receive Date: 20130606
  Receipt Date: 20130606
  Transmission Date: 20140414
  Serious: Yes (Hospitalization)
  Sender: FDA-Public Use
  Company Number: GB-MERCK-1302GBR011939

PATIENT
  Age: 67 Year
  Sex: Male

DRUGS (2)
  1. EZETROL [Suspect]
     Dosage: UNK
     Route: 048
  2. RAMIPRIL [Concomitant]
     Dosage: UNK

REACTIONS (3)
  - Adverse event [Unknown]
  - Dysphagia [Unknown]
  - Drug dose omission [Unknown]
